FAERS Safety Report 20740980 (Version 1)
Quarter: 2022Q2

REPORT INFORMATION
  Report Type: Spontaneous
  Country: US (occurrence: US)
  Receive Date: 20220422
  Receipt Date: 20220422
  Transmission Date: 20220721
  Serious: No
  Sender: FDA-Public Use
  Company Number: US-PFIZER INC-202100978586

PATIENT
  Age: 67 Year
  Sex: Female
  Weight: 61.23 kg

DRUGS (1)
  1. CELECOXIB [Suspect]
     Active Substance: CELECOXIB
     Indication: Inflammation
     Dosage: 200 MG, 1X/DAY (200MG, 1 CAPSULE DAILY BY MOUTH)
     Route: 048
     Dates: start: 20210729

REACTIONS (3)
  - Rash [Not Recovered/Not Resolved]
  - Rash erythematous [Unknown]
  - Off label use [Unknown]

NARRATIVE: CASE EVENT DATE: 20210729
